FAERS Safety Report 8305412-1 (Version None)
Quarter: 2012Q2

REPORT INFORMATION
  Report Type: 
  Country: None (occurrence: None)
  Receive Date: 20120423
  Receipt Date: 20120411
  Transmission Date: 20120825
  Serious: Yes (Hospitalization)
  Sender: FDA-Public Use
  Company Number: US-BRISTOL-MYERS SQUIBB COMPANY-16517450

PATIENT
  Age: 32 Year
  Sex: Male
  Weight: 79 kg

DRUGS (2)
  1. ABILIFY [Suspect]
     Indication: BIPOLAR I DISORDER
     Dosage: PROBABLY 5 MG ONCE DAILY;REDUCED TO 2MG
     Dates: start: 20100701, end: 20110501
  2. DEPAKOTE [Suspect]

REACTIONS (4)
  - BLOOD GLUCOSE INCREASED [None]
  - PANCREATIC PSEUDOCYST [None]
  - BLOOD TRIGLYCERIDES INCREASED [None]
  - PNEUMONIA [None]
